FAERS Safety Report 22535451 (Version 1)
Quarter: 2023Q2

REPORT INFORMATION
  Report Type: Spontaneous
  Country: US (occurrence: None)
  Receive Date: 20230607
  Receipt Date: 20230607
  Transmission Date: 20230722
  Serious: Yes (Hospitalization, Other)
  Sender: FDA-Public Use
  Company Number: None

PATIENT
  Age: 23 Year
  Sex: Male
  Weight: 58.95 kg

DRUGS (1)
  1. HALOPERIDOL [Suspect]
     Active Substance: HALOPERIDOL
     Indication: Agitation
     Dosage: FREQUENCY : AT BEDTIME;?
     Route: 048
     Dates: start: 20230327, end: 20230331

REACTIONS (8)
  - Angioedema [None]
  - Drug hypersensitivity [None]
  - Swollen tongue [None]
  - Dysphagia [None]
  - Protrusion tongue [None]
  - Tongue movement disturbance [None]
  - Pain [None]
  - Feeding disorder [None]

NARRATIVE: CASE EVENT DATE: 20230331
